FAERS Safety Report 6151538-0 (Version None)
Quarter: 2009Q2

REPORT INFORMATION
  Report Type: 
  Country: None (occurrence: None)
  Receive Date: 20090410
  Receipt Date: 20090403
  Transmission Date: 20091009
  Serious: Yes (Hospitalization, Disabling, Other)
  Sender: FDA-Public Use
  Company Number: IL-ROXANE LABORATORIES, INC.-2009-RO-00341RO

PATIENT
  Age: 49 Year
  Sex: Male

DRUGS (14)
  1. MORPHINE [Suspect]
     Indication: PHANTOM PAIN
     Dosage: 300MG
  2. MORPHINE [Suspect]
  3. MORPHINE [Suspect]
     Route: 042
  4. MORPHINE [Suspect]
  5. MORPHINE [Suspect]
     Dosage: 120MG
  6. MEPERIDINE HCL [Suspect]
     Indication: PAIN
     Route: 030
  7. TRAMADOL [Suspect]
     Indication: PAIN
     Route: 042
  8. OXYCONTIN [Suspect]
     Indication: PAIN
     Dosage: 80MG
  9. OXYCONTIN [Suspect]
     Indication: PHANTOM PAIN
     Dosage: 120MG
  10. OXYCONTIN [Suspect]
     Dosage: 160MG
  11. CLONAZEPAM [Suspect]
     Indication: PHANTOM PAIN
     Dosage: 1MG
     Route: 048
  12. KETAMINE HCL [Concomitant]
     Indication: PHANTOM PAIN
     Route: 042
  13. KETAMINE HCL [Concomitant]
     Route: 042
  14. OXYCODONE HCL [Concomitant]
     Indication: PHANTOM PAIN

REACTIONS (7)
  - ALLODYNIA [None]
  - DRUG INEFFECTIVE [None]
  - HYPERAESTHESIA [None]
  - INFECTION [None]
  - LEG AMPUTATION [None]
  - NECROSIS [None]
  - PHANTOM PAIN [None]
